FAERS Safety Report 17625610 (Version 2)
Quarter: 2020Q2

REPORT INFORMATION
  Report Type: Spontaneous
  Country: US (occurrence: US)
  Receive Date: 20200404
  Receipt Date: 20200408
  Transmission Date: 20200713
  Serious: Yes (Other)
  Sender: FDA-Public Use
  Company Number: US-DRREDDYS-USA/USA/20/0121516

PATIENT

DRUGS (2)
  1. SEVELAMER CARBONATE TABLETS, 800 MG [Suspect]
     Active Substance: SEVELAMER CARBONATE
     Route: 048
  2. SEVELAMER CARBONATE TABLETS, 800 MG [Suspect]
     Active Substance: SEVELAMER CARBONATE
     Indication: PRODUCT USED FOR UNKNOWN INDICATION
     Route: 048
     Dates: end: 20190114

REACTIONS (2)
  - Eye haemorrhage [Recovered/Resolved]
  - Constipation [Recovered/Resolved]

NARRATIVE: CASE EVENT DATE: 20190114
